FAERS Safety Report 10152922 (Version 1)
Quarter: 2014Q2

REPORT INFORMATION
  Report Type: Spontaneous
  Country: US (occurrence: US)
  Receive Date: 20140505
  Receipt Date: 20140505
  Transmission Date: 20141212
  Serious: Yes (Hospitalization)
  Sender: FDA-Public Use
  Company Number: US-B.I. PHARMACEUTICALS,INC./RIDGEFIELD-2014-BI-19444BP

PATIENT
  Age: 68 Year
  Sex: Female
  Weight: 54 kg

DRUGS (5)
  1. SPIRIVA [Suspect]
     Indication: CHRONIC OBSTRUCTIVE PULMONARY DISEASE
     Dosage: 18 MCG
     Route: 055
     Dates: start: 201005, end: 201006
  2. SPIRIVA [Suspect]
     Route: 065
  3. HYDROCODONE [Concomitant]
     Indication: PAIN
     Dosage: STRENGTH: 7.5-325
     Route: 048
  4. VYVANCE [Concomitant]
     Indication: HYPERTENSION
     Dosage: 80 MG
     Route: 048
  5. MULTIVITAMIN [Concomitant]
     Indication: VITAMIN SUPPLEMENTATION
     Dosage: STRENGTH: 1 TABLET; DAILY DOSE: 1 TABLET
     Route: 048

REACTIONS (8)
  - Bronchitis [Not Recovered/Not Resolved]
  - Fall [Recovered/Resolved]
  - Spinal fracture [Unknown]
  - Chest discomfort [Not Recovered/Not Resolved]
  - Ocular hyperaemia [Not Recovered/Not Resolved]
  - Eye pain [Not Recovered/Not Resolved]
  - Pharyngeal oedema [Recovered/Resolved]
  - Dysphagia [Recovered/Resolved]
